FAERS Safety Report 9378933 (Version 1)
Quarter: 2013Q3

REPORT INFORMATION
  Report Type: Spontaneous
  Country: US (occurrence: US)
  Receive Date: 20130702
  Receipt Date: 20130702
  Transmission Date: 20140515
  Serious: No
  Sender: FDA-Public Use
  Company Number: US-PFIZER INC-2013192376

PATIENT
  Age: 52 Year
  Sex: Female
  Weight: 77 kg

DRUGS (3)
  1. XALATAN [Suspect]
     Indication: EYE DISORDER
     Dosage: UNK, 1X/DAY
     Route: 047
     Dates: start: 2006
  2. COSOPT [Concomitant]
     Indication: EYE DISORDER
     Dosage: UNK
     Route: 047
  3. LISINOPRIL [Concomitant]
     Indication: HYPERTENSION
     Dosage: UNK

REACTIONS (1)
  - Fall [Unknown]
